FAERS Safety Report 20841993 (Version 3)
Quarter: 2022Q3

REPORT INFORMATION
  Report Type: Report from Study
  Country: US (occurrence: US)
  Receive Date: 20220518
  Receipt Date: 20220817
  Transmission Date: 20221026
  Serious: No
  Sender: FDA-Public Use
  Company Number: US-NOVARTISTESTPH-NVSC2022US114069

PATIENT
  Age: 9 Year
  Sex: Female

DRUGS (3)
  1. ILARIS [Suspect]
     Active Substance: CANAKINUMAB
     Indication: Product used for unknown indication
     Dosage: 50 MG, QMO
     Route: 058
     Dates: start: 20191129
  2. ILARIS [Suspect]
     Active Substance: CANAKINUMAB
     Dosage: 50 MG, EVERY 8 WEEKS
     Route: 058
     Dates: start: 20191129
  3. ILARIS [Suspect]
     Active Substance: CANAKINUMAB
     Dosage: 40 MG
     Route: 065
     Dates: start: 20220607

REACTIONS (2)
  - Product dispensing error [Unknown]
  - Incorrect dose administered [Unknown]

NARRATIVE: CASE EVENT DATE: 20220608
